FAERS Safety Report 4311612-8 (Version None)
Quarter: 2004Q1

REPORT INFORMATION
  Report Type: 
  Country: None (occurrence: None)
  Receive Date: 20040304
  Receipt Date: 20031107
  Transmission Date: 20041129
  Serious: Yes (Hospitalization)
  Sender: FDA-Public Use
  Company Number: FR-ROCHE-351014

PATIENT
  Age: 58 Year
  Sex: Male
  Weight: 62 kg

DRUGS (11)
  1. INVIRASE [Suspect]
     Indication: HIV INFECTION
     Route: 065
     Dates: start: 20030415, end: 20030429
  2. ENFUVIRTIDE [Suspect]
     Indication: HIV INFECTION
     Route: 058
     Dates: start: 20030416, end: 20030422
  3. NORVIR [Suspect]
     Indication: HIV INFECTION
     Route: 065
     Dates: start: 20030415, end: 20030429
  4. VIREAD [Concomitant]
     Dates: start: 20030415
  5. EPIVIR [Concomitant]
     Dates: start: 20030415
  6. KALETRA [Concomitant]
     Dates: start: 20030415
  7. ZIAGEN [Concomitant]
     Dates: start: 20030415
  8. BACTRIM [Concomitant]
     Dates: start: 19860615
  9. DIFLUCAN [Concomitant]
     Dates: start: 19990615
  10. CORTANCYL [Concomitant]
     Dates: start: 20020514
  11. AZADOSE [Concomitant]
     Dates: start: 20010129, end: 20030610

REACTIONS (2)
  - GASTROINTESTINAL TOXICITY [None]
  - VOMITING [None]
